FAERS Safety Report 7888085-1 (Version None)
Quarter: 2011Q4

REPORT INFORMATION
  Report Type: 
  Country: None (occurrence: None)
  Receive Date: 20111101
  Receipt Date: 20111027
  Transmission Date: 20120403
  Serious: Yes (Congenital Anomaly, Other)
  Sender: FDA-Public Use
  Company Number: AUR-APL-2011-05439

PATIENT
  Sex: Female
  Weight: 1.87 kg

DRUGS (7)
  1. CHLORPROMAZINE [Suspect]
     Indication: MENTAL DISORDER
     Dosage: 25 MG, TRANSPLACTAL; 50 MG, TRANSPLACENTAL
     Route: 064
     Dates: start: 20100501
  2. CHLORPROMAZINE [Suspect]
     Indication: MENTAL DISORDER
     Dosage: 25 MG, TRANSPLACTAL; 50 MG, TRANSPLACENTAL
     Route: 064
     Dates: start: 20101005
  3. FLUOXETINE [Suspect]
     Indication: MENTAL DISORDER
     Dosage: 40 MG, TRANSPLACENTAL; 20 MG, TRANSPLACENTAL
     Route: 064
     Dates: start: 20110401
  4. FLUOXETINE [Suspect]
     Indication: MENTAL DISORDER
     Dosage: 40 MG, TRANSPLACENTAL; 20 MG, TRANSPLACENTAL
     Route: 064
     Dates: start: 20110117, end: 20110401
  5. OMEPRAZOLE [Concomitant]
  6. PAROXETINE HCL [Concomitant]
  7. CYCLIZINE (CYCLIZINE) [Concomitant]

REACTIONS (2)
  - MATERNAL DRUGS AFFECTING FOETUS [None]
  - CLEFT PALATE [None]
